FAERS Safety Report 9804559 (Version 1)
Quarter: 2014Q1

REPORT INFORMATION
  Report Type: Spontaneous
  Country: FR (occurrence: FR)
  Receive Date: 20140108
  Receipt Date: 20140108
  Transmission Date: 20141002
  Serious: Yes (Hospitalization)
  Sender: FDA-Public Use
  Company Number: FR-BRISTOL-MYERS SQUIBB COMPANY-19975770

PATIENT
  Age: 67 Year
  Sex: Male

DRUGS (1)
  1. SPRYCEL [Suspect]
     Route: 048
     Dates: start: 201111

REACTIONS (1)
  - Adenocarcinoma pancreas [Not Recovered/Not Resolved]
